FAERS Safety Report 4972659-1 (Version None)
Quarter: 2006Q1

REPORT INFORMATION
  Report Type: 
  Country: None (occurrence: None)
  Receive Date: 20060216
  Receipt Date: 20050921
  Transmission Date: 20060701
  Serious: Yes (Hospitalization)
  Sender: FDA-Public Use
  Company Number: 200509IM000536

PATIENT
  Age: 80 Year
  Sex: Male
  Weight: 89 kg

DRUGS (2)
  1. INTERFERON GAMMA-1B [Suspect]
     Indication: IDIOPATHIC PULMONARY FIBROSIS
     Dosage: 200 UG, TIW, SUBCUTANEOUS
     Route: 058
     Dates: start: 20031212
  2. BETASERON [Concomitant]

REACTIONS (6)
  - CLOSTRIDIUM DIFFICILE COLITIS [None]
  - DEEP VEIN THROMBOSIS [None]
  - HYPOTENSION [None]
  - RENAL FAILURE ACUTE [None]
  - SEPTIC SHOCK [None]
  - URINARY TRACT INFECTION [None]
